FAERS Safety Report 19729994 (Version 2)
Quarter: 2021Q3

REPORT INFORMATION
  Report Type: Report from Study
  Country: FI (occurrence: FI)
  Receive Date: 20210820
  Receipt Date: 20210825
  Transmission Date: 20211014
  Serious: Yes (Other)
  Sender: FDA-Public Use
  Company Number: FI-JNJFOC-20210829026

PATIENT

DRUGS (1)
  1. STELARA [Suspect]
     Active Substance: USTEKINUMAB
     Indication: CROHN^S DISEASE
     Route: 058

REACTIONS (5)
  - Abdominal abscess [Unknown]
  - Respiratory tract infection [Unknown]
  - Drug ineffective [Unknown]
  - Sepsis [Unknown]
  - Hepatic enzyme increased [Unknown]
